FAERS Safety Report 18943207 (Version 2)
Quarter: 2021Q2

REPORT INFORMATION
  Report Type: Report from Study
  Country: US (occurrence: US)
  Receive Date: 20210226
  Receipt Date: 20210412
  Transmission Date: 20210717
  Serious: Yes (Other)
  Sender: FDA-Public Use
  Company Number: US-AMGEN-USASL2020080538

PATIENT
  Age: 72 Year
  Sex: Male

DRUGS (4)
  1. NPLATE [Suspect]
     Active Substance: ROMIPLOSTIM
     Indication: IMMUNE THROMBOCYTOPENIA
     Dosage: 97 MICROGRAM, QWK
     Route: 065
  2. NPLATE [Suspect]
     Active Substance: ROMIPLOSTIM
     Dosage: 197 MICROGRAM
     Route: 065
     Dates: start: 202103
  3. COVID?19 VACCINE NOS. [Suspect]
     Active Substance: COVID-19 VACCINE NOS
     Indication: PRODUCT USED FOR UNKNOWN INDICATION
     Dosage: UNK
     Route: 065
     Dates: start: 202103
  4. NPLATE [Suspect]
     Active Substance: ROMIPLOSTIM
     Dosage: 94 MICROGRAM, QWK
     Route: 065

REACTIONS (7)
  - Back pain [Unknown]
  - Arthralgia [Recovered/Resolved]
  - Fatigue [Unknown]
  - Myalgia [Recovered/Resolved]
  - Headache [Recovered/Resolved]
  - Neuropathy peripheral [Not Recovered/Not Resolved]
  - Platelet count decreased [Recovered/Resolved]
